FAERS Safety Report 23983648 (Version 1)
Quarter: 2024Q2

REPORT INFORMATION
  Report Type: Spontaneous
  Country: JP (occurrence: JP)
  Receive Date: 20240618
  Receipt Date: 20240618
  Transmission Date: 20240716
  Serious: Yes (Other)
  Sender: FDA-Public Use
  Company Number: JP-SHIRE-JP201917130

PATIENT
  Age: 12 Year
  Sex: Male

DRUGS (9)
  1. ROZEREM [Suspect]
     Active Substance: RAMELTEON
     Indication: Insomnia
     Dosage: 4 MILLIGRAM
     Route: 048
     Dates: start: 20171212, end: 20180131
  2. ROZEREM [Suspect]
     Active Substance: RAMELTEON
     Dosage: 6 MILLIGRAM
     Route: 048
     Dates: start: 20180201, end: 20180531
  3. ROZEREM [Suspect]
     Active Substance: RAMELTEON
     Dosage: 8 MILLIGRAM
     Route: 048
     Dates: start: 20180601, end: 20180801
  4. INTUNIV [Suspect]
     Active Substance: GUANFACINE HYDROCHLORIDE
     Indication: Attention deficit hyperactivity disorder
     Dosage: 1 MILLIGRAM
     Route: 048
     Dates: start: 201709
  5. INTUNIV [Suspect]
     Active Substance: GUANFACINE HYDROCHLORIDE
     Dosage: 2 MILLIGRAM
     Route: 048
     Dates: start: 201808
  6. RISPERIDONE [Concomitant]
     Active Substance: RISPERIDONE
     Dosage: UNK
     Route: 065
  7. DOMPERIDONE [Concomitant]
     Active Substance: DOMPERIDONE
     Dosage: UNK
     Route: 065
  8. ATOMOXETINE HYDROCHLORIDE [Concomitant]
     Active Substance: ATOMOXETINE HYDROCHLORIDE
     Indication: Attention deficit hyperactivity disorder
     Dosage: UNK
     Route: 065
     Dates: start: 201405
  9. ATOMOXETINE HYDROCHLORIDE [Concomitant]
     Active Substance: ATOMOXETINE HYDROCHLORIDE
     Dosage: UNK
     Route: 065

REACTIONS (9)
  - Bradycardia [Recovered/Resolved]
  - Hyperbilirubinaemia [Recovering/Resolving]
  - Sinus arrhythmia [Recovered/Resolved]
  - Hyperuricaemia [Recovered/Resolved]
  - Disturbance in attention [Unknown]
  - Product administered to patient of inappropriate age [Unknown]
  - Off label use [Unknown]
  - Product prescribing error [Unknown]
  - Wrong technique in product usage process [Unknown]

NARRATIVE: CASE EVENT DATE: 20171212
